FAERS Safety Report 17339544 (Version 1)
Quarter: 2020Q1

REPORT INFORMATION
  Report Type: Spontaneous
  Country: US (occurrence: US)
  Receive Date: 20200128
  Receipt Date: 20200128
  Transmission Date: 20200409
  Serious: No
  Sender: FDA-Public Use
  Company Number: None

PATIENT
  Age: 53 Year
  Sex: Female

DRUGS (3)
  1. ORENCIA [Suspect]
     Active Substance: ABATACEPT
     Indication: RHEUMATOID ARTHRITIS
     Dosage: ?          OTHER FREQUENCY:WEEKLY;?
     Route: 058
     Dates: start: 20180213
  2. KLOR-CON 10 TAB 10MEQ ER [Concomitant]
  3. MELATONIN SUB 10MG [Concomitant]

REACTIONS (2)
  - Drug ineffective [None]
  - Pain [None]

NARRATIVE: CASE EVENT DATE: 20200128
